FAERS Safety Report 6562050-9 (Version None)
Quarter: 2010Q1

REPORT INFORMATION
  Report Type: 
  Country: None (occurrence: None)
  Receive Date: 20100130
  Receipt Date: 20091226
  Transmission Date: 20100710
  Serious: No
  Sender: FDA-Public Use
  Company Number: US-ABBOTT-09P-163-0600893-00

PATIENT
  Sex: Male
  Weight: 86.714 kg

DRUGS (11)
  1. HUMIRA [Suspect]
     Indication: CROHN'S DISEASE
     Dates: start: 20090831
  2. HUMIRA [Suspect]
  3. VITAMIN B-12 [Concomitant]
     Indication: VITAMIN B12 DEFICIENCY
     Route: 050
  4. CYMBALTA [Concomitant]
     Indication: DEPRESSION
  5. CYMBALTA [Concomitant]
     Indication: INSOMNIA
  6. AMBIEN [Concomitant]
     Indication: INSOMNIA
     Dosage: NOT TO EXCEED MORE THAN 3 TIMES/WEEK
  7. OMEPRAZOLE [Concomitant]
     Indication: HIATUS HERNIA
  8. OMEPRAZOLE [Concomitant]
     Indication: GASTROOESOPHAGEAL REFLUX DISEASE
  9. NORCO [Concomitant]
     Indication: PAIN
     Dosage: 1-5/325MG TABLET EVERY 6 HOURS, AS NEEDED
  10. MAXALT [Concomitant]
     Indication: MIGRAINE
     Dosage: AS NEEDED, NOT TO EXCEED 30MG/DAY
  11. ENTOCORT EC [Concomitant]
     Indication: CROHN'S DISEASE
     Dosage: 40-20MG CAPSULES ONCE DAILY

REACTIONS (3)
  - DYSPNOEA [None]
  - MUSCLE SPASMS [None]
  - MYALGIA [None]
